FAERS Safety Report 16361335 (Version 1)
Quarter: 2019Q2

REPORT INFORMATION
  Report Type: Spontaneous
  Country: US (occurrence: US)
  Receive Date: 20190528
  Receipt Date: 20190528
  Transmission Date: 20190711
  Serious: Yes (Life-Threatening, Other)
  Sender: FDA-Public Use
  Company Number: US-PFIZER INC-2019187176

PATIENT
  Age: 32 Year
  Sex: Male

DRUGS (2)
  1. FENTANYL CITRATE. [Suspect]
     Active Substance: FENTANYL CITRATE
     Indication: ANALGESIC THERAPY
     Dosage: 25 UG, UNK (BOLUS)
     Route: 040
  2. FENTANYL CITRATE. [Suspect]
     Active Substance: FENTANYL CITRATE
     Dosage: 25 UG, EVERY H (HOURLY RATE)
     Route: 042

REACTIONS (2)
  - Respiratory arrest [Recovered/Resolved]
  - Brain injury [Unknown]
